FAERS Safety Report 16916522 (Version 2)
Quarter: 2019Q4

REPORT INFORMATION
  Report Type: Spontaneous
  Country: FR (occurrence: FR)
  Receive Date: 20191014
  Receipt Date: 20191224
  Transmission Date: 20200122
  Serious: Yes (Hospitalization)
  Sender: FDA-Public Use
  Company Number: FR-TEVA-2019-FR-1120062

PATIENT
  Age: 92 Year
  Sex: Male

DRUGS (1)
  1. CIPROFLOXACINE [Suspect]
     Active Substance: CIPROFLOXACIN
     Dosage: 1500 MILLIGRAM
     Route: 065
     Dates: start: 20190806, end: 20190813

REACTIONS (1)
  - Tubulointerstitial nephritis [Recovered/Resolved]

NARRATIVE: CASE EVENT DATE: 201908
